FAERS Safety Report 6341419-1 (Version None)
Quarter: 2009Q3

REPORT INFORMATION
  Report Type: 
  Country: None (occurrence: None)
  Receive Date: 20090904
  Receipt Date: 20090826
  Transmission Date: 20100115
  Serious: Yes (Hospitalization, Other)
  Sender: FDA-Public Use
  Company Number: GB-ELI_LILLY_AND_COMPANY-GB200905003163

PATIENT
  Sex: Female

DRUGS (2)
  1. FLUOXETINE [Suspect]
     Dosage: UNK, UNK
     Dates: start: 20090301
  2. COCAINE [Concomitant]

REACTIONS (2)
  - NAUSEA [None]
  - SYNCOPE [None]
